FAERS Safety Report 5195158-3 (Version None)
Quarter: 2006Q4

REPORT INFORMATION
  Report Type: 
  Country: None (occurrence: None)
  Receive Date: 20061229
  Receipt Date: 20061219
  Transmission Date: 20070319
  Serious: Yes (Hospitalization)
  Sender: FDA-Public Use
  Company Number: US-BOEHRINGER INGELHEIM PHARMACEUTICALS, INC.-2006-BP-14795BP

PATIENT
  Sex: Female

DRUGS (6)
  1. COMBIVENT [Suspect]
     Indication: CHRONIC OBSTRUCTIVE PULMONARY DISEASE
     Route: 055
     Dates: start: 20040101, end: 20060201
  2. LEVSIN [Concomitant]
     Indication: DIARRHOEA
  3. CARAFATE [Concomitant]
     Indication: ULCER
  4. PROTONIX [Concomitant]
     Indication: ULCER
  5. CRESTOR [Concomitant]
     Indication: BLOOD CHOLESTEROL
  6. ALBUTEROL [Concomitant]

REACTIONS (3)
  - DRUG HYPERSENSITIVITY [None]
  - DYSPNOEA [None]
  - URTICARIA [None]
